FAERS Safety Report 17149256 (Version 2)
Quarter: 2020Q1

REPORT INFORMATION
  Report Type: Spontaneous
  Country: FR (occurrence: FR)
  Receive Date: 20191213
  Receipt Date: 20200101
  Transmission Date: 20200409
  Serious: Yes (Hospitalization)
  Sender: FDA-Public Use
  Company Number: FR-AUROBINDO-AUR-APL-2019-104760

PATIENT
  Age: 92 Year
  Sex: Male
  Weight: 63 kg

DRUGS (2)
  1. CETIRIZINE ARROW FILM-COATED TABLET 10 MG [Suspect]
     Active Substance: CETIRIZINE HYDROCHLORIDE
     Indication: PRURIGO
     Dosage: 10 MILLIGRAM
     Route: 048
     Dates: start: 201812, end: 20190624
  2. ATARAX [Suspect]
     Active Substance: HYDROXYZINE HYDROCHLORIDE
     Indication: PRURIGO
     Dosage: 25 MILLIGRAM
     Route: 048
     Dates: start: 201812, end: 20190624

REACTIONS (3)
  - Confusional state [Recovering/Resolving]
  - Fall [Recovered/Resolved]
  - Bladder dilatation [Recovered/Resolved]

NARRATIVE: CASE EVENT DATE: 20190227
